FAERS Safety Report 6780895-7 (Version None)
Quarter: 2010Q2

REPORT INFORMATION
  Report Type: 
  Country: None (occurrence: None)
  Receive Date: 20100615
  Receipt Date: 20100603
  Transmission Date: 20101027
  Serious: Yes (Other)
  Sender: FDA-Public Use
  Company Number: 2010S1000461-001

PATIENT
  Age: 50 Year
  Sex: Female

DRUGS (4)
  1. LIVALO [Suspect]
     Indication: HYPERCHOLESTEROLAEMIA
     Dosage: 4 MG, PO
     Route: 048
     Dates: start: 20090315, end: 20100412
  2. ETIZOLAM [Concomitant]
  3. ANALGESIC ANTIPYRETIC DRUG [Concomitant]
  4. FEXOFENADINE HCL [Concomitant]

REACTIONS (3)
  - ABDOMINAL PAIN [None]
  - BACK PAIN [None]
  - RHABDOMYOLYSIS [None]
